FAERS Safety Report 5888373-4 (Version None)
Quarter: 2008Q3

REPORT INFORMATION
  Report Type: 
  Country: None (occurrence: None)
  Receive Date: 20080918
  Receipt Date: 20080908
  Transmission Date: 20090109
  Serious: Yes (Other)
  Sender: FDA-Public Use
  Company Number: US-ALLERGAN-0806767US

PATIENT
  Sex: Male
  Weight: 36.281 kg

DRUGS (9)
  1. BOTOX [Suspect]
     Indication: MUSCLE SPASTICITY
     Dosage: 50 UNITS, SINGLE
     Route: 030
     Dates: start: 20041007, end: 20041007
  2. BOTOX [Suspect]
     Dosage: 100 UNITS, SINGLE
     Route: 030
     Dates: start: 20060216, end: 20060216
  3. BOTOX [Suspect]
     Dosage: 300 UNITS, SINGLE
     Route: 030
     Dates: start: 20070208, end: 20070208
  4. CARBATROL [Concomitant]
     Indication: CONVULSION
     Dosage: 600 MG, BID
     Route: 048
  5. PREVACID [Concomitant]
     Dosage: 30 MG, QD
     Route: 048
  6. PROPULSID [Concomitant]
     Dosage: 2.5 MG, TID
     Route: 048
  7. RHINOCORT [Concomitant]
  8. ASTELIN [Concomitant]
  9. CLARINEX [Concomitant]

REACTIONS (7)
  - CHILLS [None]
  - CONVULSION [None]
  - DYSPHAGIA [None]
  - PYREXIA [None]
  - RESPIRATORY DISORDER [None]
  - RESPIRATORY RATE INCREASED [None]
  - RESPIRATORY TRACT INFECTION [None]
